FAERS Safety Report 9381347 (Version 2)
Quarter: 2013Q3

REPORT INFORMATION
  Report Type: Report from Study
  Country: JP (occurrence: JP)
  Receive Date: 20130703
  Receipt Date: 20130806
  Transmission Date: 20140515
  Serious: Yes (Hospitalization)
  Sender: FDA-Public Use
  Company Number: US-MERCK-1307USA000215

PATIENT
  Age: 57 Year
  Sex: Male

DRUGS (8)
  1. PEGINTRON [Suspect]
     Indication: CHRONIC HEPATITIS C
     Dosage: 120 MICROGRAM, QW
     Route: 058
     Dates: start: 20130205, end: 20130614
  2. REBETOL [Suspect]
     Indication: CHRONIC HEPATITIS C
     Dosage: 1000 MILIGRAM DAILY
     Route: 048
     Dates: start: 20130205, end: 20130614
  3. ASUNAPREVIR [Suspect]
     Indication: CHRONIC HEPATITIS C
     Dosage: 200 MG, UNK
     Route: 048
     Dates: start: 20130510, end: 20130614
  4. DACLATASVIR [Suspect]
     Indication: CHRONIC HEPATITIS C
     Dosage: 60 MG, UNK
     Route: 048
     Dates: start: 20130510, end: 20130614
  5. LOXOPROFEN SODIUM [Concomitant]
     Dosage: UNK
     Dates: start: 20130205
  6. TEPRENONE [Concomitant]
     Dosage: UNK
     Dates: start: 20130205
  7. ALLOPURINOL [Concomitant]
     Dosage: UNK
     Dates: start: 20130207
  8. FAMOTIDINE [Concomitant]
     Dosage: UNK
     Dates: start: 20130615

REACTIONS (1)
  - Cerebral haemorrhage [Recovering/Resolving]
